FAERS Safety Report 25996272 (Version 1)
Quarter: 2025Q4

REPORT INFORMATION
  Report Type: Spontaneous
  Country: CN (occurrence: CN)
  Receive Date: 20251104
  Receipt Date: 20251104
  Transmission Date: 20260118
  Serious: Yes (Hospitalization, Other)
  Sender: MERCK SHARP & DOHME LLC
  Company Number: CN-009507513-2343808

PATIENT
  Age: 71 Year
  Sex: Male
  Weight: 62 kg

DRUGS (6)
  1. PEMBROLIZUMAB [Suspect]
     Active Substance: PEMBROLIZUMAB
     Indication: Oesophageal carcinoma
     Dosage: TIME INTERVAL: TOTAL: 200 MG, ONCE
     Route: 041
     Dates: start: 20250911, end: 20250911
  2. CARBOPLATIN [Suspect]
     Active Substance: CARBOPLATIN
     Indication: Oesophageal carcinoma
     Dosage: TIME INTERVAL: TOTAL: 350 MG, ONCE
     Route: 041
     Dates: start: 20250911, end: 20250911
  3. DEXTROSE [Concomitant]
     Active Substance: DEXTROSE MONOHYDRATE
     Indication: Medication dilution
     Dosage: TIME INTERVAL: TOTAL: 500 ML, ONCE
     Route: 041
     Dates: start: 20250911, end: 20250911
  4. DOCETAXEL [Suspect]
     Active Substance: DOCETAXEL
     Indication: Oesophageal carcinoma
     Dosage: TIME INTERVAL: TOTAL: 80 MG, ONCE
     Route: 041
     Dates: start: 20250911, end: 20250911
  5. SODIUM CHLORIDE [Concomitant]
     Active Substance: SODIUM CHLORIDE
     Indication: Medication dilution
     Dosage: TIME INTERVAL: TOTAL: 100 ML, ONCE
     Route: 041
     Dates: start: 20250911, end: 20250911
  6. SODIUM CHLORIDE [Concomitant]
     Active Substance: SODIUM CHLORIDE
     Indication: Medication dilution
     Dosage: TIME INTERVAL: TOTAL: 250 ML, ONCE
     Route: 041
     Dates: start: 20250911, end: 20250911

REACTIONS (3)
  - Myelosuppression [Recovering/Resolving]
  - Product use issue [Unknown]
  - Liver injury [Recovering/Resolving]

NARRATIVE: CASE EVENT DATE: 20250911
